FAERS Safety Report 8596882-2 (Version None)
Quarter: 2012Q3

REPORT INFORMATION
  Report Type: 
  Country: None (occurrence: None)
  Receive Date: 20120815
  Receipt Date: 20120801
  Transmission Date: 20120928
  Serious: Yes (Other)
  Sender: FDA-Public Use
  Company Number: DE-FRI-1000037761

PATIENT
  Sex: Male

DRUGS (13)
  1. MEMANTINE HCL [Suspect]
     Indication: PAIN
     Dosage: 30 MG
     Dates: start: 20100218, end: 20100218
  2. MEMANTINE HCL [Suspect]
     Indication: COMPLEX REGIONAL PAIN SYNDROME
     Dosage: 90 MG
     Dates: start: 20100219, end: 20100220
  3. MEMANTINE HCL [Suspect]
     Indication: NEURALGIA
  4. MEMANTINE HCL [Suspect]
  5. MEMANTINE HCL [Suspect]
  6. MEMANTINE HCL [Suspect]
  7. MEMANTINE HCL [Suspect]
     Dosage: 60 MG
     Dates: start: 20100221, end: 20100221
  8. ARCOXIA [Concomitant]
     Indication: PAIN
     Dosage: 120 MG
  9. IBUPROFEN [Concomitant]
     Indication: PAIN
     Dosage: 1200 MG
  10. MEMANTINE HCL [Suspect]
  11. FLUPIRTINE MALEATE [Concomitant]
     Indication: PAIN
  12. HALDOL [Concomitant]
     Indication: NAUSEA
     Dosage: 24 GTT
  13. HALDOL [Concomitant]
     Indication: HALLUCINATION

REACTIONS (9)
  - PAIN MANAGEMENT [None]
  - CATHETER PLACEMENT [None]
  - SOMNOLENCE [None]
  - RESTLESSNESS [None]
  - CONSTIPATION [None]
  - DIZZINESS [None]
  - OFF LABEL USE [None]
  - THERAPEUTIC RESPONSE UNEXPECTED [None]
  - URINARY RETENTION [None]
